FAERS Safety Report 26038930 (Version 2)
Quarter: 2025Q4

REPORT INFORMATION
  Report Type: Report from Study
  Country: US (occurrence: US)
  Receive Date: 20251113
  Receipt Date: 20251226
  Transmission Date: 20260118
  Serious: Yes (Other)
  Sender: ALEXION PHARMACEUTICALS
  Company Number: US-AstraZeneca-CH-00988668A

PATIENT
  Sex: Female

DRUGS (1)
  1. STRENSIQ [Suspect]
     Active Substance: ASFOTASE ALFA
     Indication: Hypophosphatasia
     Dosage: UNK
     Route: 065

REACTIONS (7)
  - Injection site erythema [Unknown]
  - Fatigue [Unknown]
  - Dizziness [Unknown]
  - Loss of consciousness [Unknown]
  - Appendicitis perforated [Unknown]
  - Osteoporosis [Unknown]
  - Fall [Unknown]
